FAERS Safety Report 14557114 (Version 1)
Quarter: 2018Q1

REPORT INFORMATION
  Report Type: Spontaneous
  Country: NL (occurrence: NL)
  Receive Date: 20180221
  Receipt Date: 20180221
  Transmission Date: 20180509
  Serious: Yes (Other)
  Sender: FDA-Public Use
  Company Number: NL-TEVA-2018-NL-858897

PATIENT
  Age: 39 Year
  Sex: Female

DRUGS (1)
  1. TRAMADOL ZETPIL, 100 MG (MILLIGRAM) [Suspect]
     Active Substance: TRAMADOL
     Indication: NEURALGIA
     Dosage: 300 MILLIGRAM DAILY; THREE TIMES A DAY ONE
     Route: 065
     Dates: start: 20171201, end: 20171202

REACTIONS (3)
  - Haematochezia [Recovered/Resolved]
  - Administration site pain [Recovered/Resolved]
  - Diarrhoea [Recovered/Resolved]

NARRATIVE: CASE EVENT DATE: 20171202
